FAERS Safety Report 19579279 (Version 1)
Quarter: 2021Q3

REPORT INFORMATION
  Report Type: Spontaneous
  Country: US (occurrence: US)
  Receive Date: 20210720
  Receipt Date: 20210720
  Transmission Date: 20211014
  Serious: No
  Sender: FDA-Public Use
  Company Number: US-JNJFOC-20210718901

PATIENT
  Age: 53 Year
  Sex: Female

DRUGS (1)
  1. WOMENS ROGAINE UNSCENTED [Suspect]
     Active Substance: MINOXIDIL
     Indication: ALOPECIA
     Dosage: NOT EVEN A WHOLE CAP FULL ONCE A DAY
     Route: 061
     Dates: start: 20210706

REACTIONS (4)
  - Application site rash [Recovered/Resolved]
  - Application site irritation [Not Recovered/Not Resolved]
  - Incorrect dose administered [Unknown]
  - Application site pain [Not Recovered/Not Resolved]

NARRATIVE: CASE EVENT DATE: 20210706
